FAERS Safety Report 4825664-X (Version None)
Quarter: 2005Q4

REPORT INFORMATION
  Report Type: 
  Country: None (occurrence: None)
  Receive Date: 20051111
  Receipt Date: 20051101
  Transmission Date: 20060501
  Serious: Yes (Other)
  Sender: FDA-Public Use
  Company Number: PHBS2005BR16283

PATIENT
  Age: 33 Year
  Sex: Female
  Weight: 104 kg

DRUGS (7)
  1. MELLARIL [Suspect]
     Indication: ANGELMAN'S SYNDROME
     Dosage: 125 MG/D
     Route: 048
     Dates: start: 19890517
  2. TOFRANIL [Suspect]
     Route: 065
     Dates: start: 19910101
  3. BUSPAR [Concomitant]
     Route: 065
     Dates: start: 19920901
  4. LEXOTAN [Concomitant]
     Route: 065
     Dates: start: 19930101
  5. TEGRETOL [Concomitant]
     Route: 065
     Dates: start: 19970101
  6. PROPRANOLOL [Concomitant]
     Route: 065
     Dates: start: 19970101
  7. RIVOTRIL [Concomitant]
     Indication: ANGELMAN'S SYNDROME
     Dosage: 0.5 MG, QHS
     Dates: start: 19980101

REACTIONS (14)
  - BENIGN OVARIAN TUMOUR [None]
  - BLOOD PROLACTIN INCREASED [None]
  - COMPUTERISED TOMOGRAM ABNORMAL [None]
  - DEPRESSION [None]
  - HORMONE LEVEL ABNORMAL [None]
  - MENSTRUATION IRREGULAR [None]
  - MUSCULOSKELETAL STIFFNESS [None]
  - MYOCLONIC EPILEPSY [None]
  - OVARIAN CYST [None]
  - SELF INJURIOUS BEHAVIOUR [None]
  - STOMATITIS [None]
  - SURGERY [None]
  - TREMOR [None]
  - WEIGHT INCREASED [None]
